FAERS Safety Report 11750441 (Version 1)
Quarter: 2015Q4

REPORT INFORMATION
  Report Type: Spontaneous
  Country: US (occurrence: US)
  Receive Date: 20151118
  Receipt Date: 20151118
  Transmission Date: 20160304
  Serious: Yes (Other)
  Sender: FDA-Public Use
  Company Number: US-JNJFOC-20151113089

PATIENT
  Sex: Female
  Weight: 77.11 kg

DRUGS (4)
  1. DURAGESIC [Suspect]
     Active Substance: FENTANYL
     Indication: CYSTITIS INTERSTITIAL
     Route: 062
     Dates: start: 2007
  2. DURAGESIC [Suspect]
     Active Substance: FENTANYL
     Indication: CYSTITIS INTERSTITIAL
     Route: 062
     Dates: start: 2008
  3. DURAGESIC [Suspect]
     Active Substance: FENTANYL
     Indication: CYSTITIS INTERSTITIAL
     Route: 062
  4. DURAGESIC [Suspect]
     Active Substance: FENTANYL
     Indication: CYSTITIS INTERSTITIAL
     Route: 062
     Dates: start: 2003

REACTIONS (6)
  - Multiple sclerosis [Not Recovered/Not Resolved]
  - Deafness [Not Recovered/Not Resolved]
  - Sjogren^s syndrome [Unknown]
  - Ulcer [Not Recovered/Not Resolved]
  - Drug ineffective [Unknown]
  - Drug ineffective [Not Recovered/Not Resolved]

NARRATIVE: CASE EVENT DATE: 2006
